FAERS Safety Report 8127429-2 (Version None)
Quarter: 2011Q4

REPORT INFORMATION
  Report Type: 
  Country: None (occurrence: None)
  Receive Date: 20111227
  Receipt Date: 20111024
  Transmission Date: 20120403
  Serious: No
  Sender: FDA-Public Use
  Company Number: PHEH2011US08025

PATIENT
  Sex: Female
  Weight: 86.2 kg

DRUGS (26)
  1. GLUCOPHAGE (METFORMIN) TABLET [Concomitant]
  2. LEVEMIR (INSULIN DETEMIR) INJECTION [Concomitant]
  3. PHENAZOPYRIDINE (PHENAZOPYRIDINE) TABLET [Concomitant]
  4. CINNAMON (CINNAMOMUM VERUM) TABLET, 500 MG [Concomitant]
  5. DIAMOX (ACETAZOLAMIDE) CAPSULE [Concomitant]
  6. CYMBALTA [Concomitant]
  7. HUMALOG (INSULIN LISPRO) INJECTION [Concomitant]
  8. RITALIN [Concomitant]
  9. TRAZODONE HCL [Concomitant]
  10. ZANTAC (RANITIDINE HYDROCHLORIDE) TABLET [Concomitant]
  11. FIBERCON (POLYCARBOPHIL CALCIUM) TABLET [Concomitant]
  12. PROBIOTICS (NO INGREDIENTS/SUBSTANCES) CAPSULE [Concomitant]
  13. GILENYA [Suspect]
     Dosage: 1 DF, QD, ORAL
     Route: 048
  14. SINGULAIR (MONTELUKAST) TABLET [Concomitant]
  15. METFORMIN (METFORMIN) TABLET [Concomitant]
  16. ACETAZOLAMIDE (ACETAZOLAMIDE) TABLET [Concomitant]
  17. LASIX [Concomitant]
  18. NEXIUM (ESOMEPRAZOLE MAGNESIUM) CAPSULE [Concomitant]
  19. FAMPRIDINE (FAMPRIDINE) TABLET [Concomitant]
  20. OXYCONTIN [Concomitant]
  21. COREG (CARVEDILOL) TABLET, 3.125 MG [Concomitant]
  22. PROVIGIL [Concomitant]
  23. SAXAGLIPTIN (SAXAGLIPTIN) TABLET, 5 MG [Concomitant]
  24. TEGRETOL [Concomitant]
  25. ADVAIR HFA [Concomitant]
  26. VERAMYST (FLUTICASONE FUROATE) SPRAY [Concomitant]

REACTIONS (4)
  - ABDOMINAL PAIN UPPER [None]
  - BALANCE DISORDER [None]
  - HEADACHE [None]
  - TREMOR [None]
